FAERS Safety Report 8254755-9 (Version None)
Quarter: 2012Q2

REPORT INFORMATION
  Report Type: 
  Country: None (occurrence: None)
  Receive Date: 20120403
  Receipt Date: 20120326
  Transmission Date: 20120825
  Serious: Yes (Other)
  Sender: FDA-Public Use
  Company Number: PHHY2012JP026643

PATIENT

DRUGS (1)
  1. DESFERAL [Suspect]

REACTIONS (1)
  - ANAPHYLACTIC SHOCK [None]
